FAERS Safety Report 11952070 (Version 1)
Quarter: 2016Q1

REPORT INFORMATION
  Report Type: Report from Study
  Country: PR (occurrence: PR)
  Receive Date: 20160125
  Receipt Date: 20160125
  Transmission Date: 20160526
  Serious: No
  Sender: FDA-Public Use
  Company Number: PR-ABBVIE-15K-131-1501677-00

PATIENT
  Age: 42 Year
  Sex: Female
  Weight: 74.91 kg

DRUGS (9)
  1. METHOTREXATE [Concomitant]
     Active Substance: METHOTREXATE
     Indication: PSORIATIC ARTHROPATHY
     Route: 058
  2. VITAMIN D [Concomitant]
     Active Substance: CHOLECALCIFEROL
     Indication: VITAMIN SUPPLEMENTATION
     Route: 048
  3. NEURONTIN [Concomitant]
     Active Substance: GABAPENTIN
     Indication: NERVE COMPRESSION
     Route: 048
  4. ATENOLOL. [Concomitant]
     Active Substance: ATENOLOL
     Indication: MITRAL VALVE PROLAPSE
     Dosage: FREQUENCY ONE
     Route: 048
     Dates: start: 2014
  5. HUMIRA [Suspect]
     Active Substance: ADALIMUMAB
     Indication: ANKYLOSING SPONDYLITIS
     Route: 058
     Dates: start: 201511
  6. FOLIC ACID. [Concomitant]
     Active Substance: FOLIC ACID
     Indication: VITAMIN SUPPLEMENTATION
     Route: 048
  7. WELLBUTRIN [Concomitant]
     Active Substance: BUPROPION HYDROCHLORIDE
     Indication: DEPRESSION
     Route: 048
  8. HUMIRA [Suspect]
     Active Substance: ADALIMUMAB
     Indication: PSORIATIC ARTHROPATHY
     Route: 058
     Dates: start: 20131011, end: 201510
  9. KLONOPIN [Concomitant]
     Active Substance: CLONAZEPAM
     Indication: ANXIETY
     Route: 048

REACTIONS (3)
  - Psoriasis [Recovered/Resolved]
  - Neck pain [Recovered/Resolved]
  - Irritable bowel syndrome [Recovered/Resolved]

NARRATIVE: CASE EVENT DATE: 201510
